FAERS Safety Report 5265097-8 (Version None)
Quarter: 2007Q1

REPORT INFORMATION
  Report Type: 
  Country: None (occurrence: None)
  Receive Date: 20061122
  Receipt Date: 20061027
  Transmission Date: 20070707
  Serious: Yes (Other)
  Sender: FDA-Public Use
  Company Number: US-JNJFOC-20061007128

PATIENT
  Age: 46 Year
  Sex: Male
  Weight: 90.7194 kg

DRUGS (5)
  1. RISPERDAL CONSTA [Suspect]
     Indication: SCHIZOPHRENIA
     Dosage: 25 MG, 1 IN 2 WEEK, INTRAMUSCULAR
     Route: 030
     Dates: start: 20050601
  2. RISPERDAL [Suspect]
     Indication: SCHIZOPHRENIA
     Dosage: 2 MG, 1 IN 1 DAY, ORAL
     Route: 048
     Dates: start: 20060901
  3. ABILIFY (ARIPIPRAZOLE) TABLET [Concomitant]
  4. ZOLOFT [Concomitant]
  5. BENZAPINE (ALL OTHER THERAPEUTIC PRODUCTS) TABLETS [Concomitant]

REACTIONS (3)
  - CONVULSION [None]
  - FEELING ABNORMAL [None]
  - RASH [None]
